FAERS Safety Report 9375006 (Version 2)
Quarter: 2013Q3

REPORT INFORMATION
  Report Type: Report from Study
  Country: RS (occurrence: RS)
  Receive Date: 20130628
  Receipt Date: 20130701
  Transmission Date: 20140515
  Serious: Yes (Death, Other)
  Sender: FDA-Public Use
  Company Number: PHHY2013RS066127

PATIENT
  Age: 70 Year
  Sex: Male
  Weight: 75 kg

DRUGS (3)
  1. EVEROLIMUS [Suspect]
     Indication: METASTATIC RENAL CELL CARCINOMA
     Dosage: 10 MG, DAILY
     Route: 048
     Dates: start: 20121101, end: 20121114
  2. CARDIPIRINA [Concomitant]
     Route: 048
  3. TAMSOL [Concomitant]
     Route: 048

REACTIONS (2)
  - Metastatic renal cell carcinoma [Fatal]
  - Anaemia [Recovering/Resolving]
